FAERS Safety Report 10222867 (Version 1)
Quarter: 2014Q2

REPORT INFORMATION
  Report Type: Spontaneous
  Country: US (occurrence: US)
  Receive Date: 20140607
  Receipt Date: 20140607
  Transmission Date: 20141212
  Serious: Yes (Other)
  Sender: FDA-Public Use
  Company Number: US-009507513-1406USA001707

PATIENT
  Sex: 0

DRUGS (1)
  1. INTEGRILIN [Suspect]
     Dosage: STRENGTH 0.75 MG/ML
     Route: 065

REACTIONS (3)
  - Nausea [Unknown]
  - Accidental overdose [Unknown]
  - Drug administration error [Unknown]
